FAERS Safety Report 16261293 (Version 2)
Quarter: 2019Q3

REPORT INFORMATION
  Report Type: Spontaneous
  Country: US (occurrence: US)
  Receive Date: 20190501
  Receipt Date: 20190809
  Transmission Date: 20191004
  Serious: Yes (Death)
  Sender: FDA-Public Use
  Company Number: US-PFIZER INC-2019184814

PATIENT
  Age: 70 Year
  Sex: Female

DRUGS (3)
  1. TARCEVA [Concomitant]
     Active Substance: ERLOTINIB HYDROCHLORIDE
     Dosage: 150 MG, 1X/DAY
     Dates: start: 2016
  2. XALKORI [Suspect]
     Active Substance: CRIZOTINIB
     Indication: BREAST CANCER METASTATIC
     Dosage: 200 MG, 2X/DAY
     Dates: start: 201809, end: 201904
  3. XALKORI [Suspect]
     Active Substance: CRIZOTINIB
     Indication: METASTASES TO BONE

REACTIONS (3)
  - Vomiting [Unknown]
  - Nausea [Unknown]
  - Death [Fatal]

NARRATIVE: CASE EVENT DATE: 20190409
